FAERS Safety Report 5311948-8 (Version None)
Quarter: 2007Q2

REPORT INFORMATION
  Report Type: 
  Country: None (occurrence: None)
  Receive Date: 20070430
  Receipt Date: 20060630
  Transmission Date: 20071010
  Serious: No
  Sender: FDA-Public Use
  Company Number: 2006UW10529

PATIENT
  Age: 75 Year
  Sex: Female
  Weight: 68.9 kg

DRUGS (5)
  1. NEXIUM [Suspect]
     Route: 048
     Dates: start: 20060508
  2. COUMADIN [Concomitant]
     Route: 048
  3. TRIAMTERENE [Concomitant]
     Route: 048
  4. ESTRADIOL [Concomitant]
     Route: 048
  5. CALCIUM CHLORIDE [Concomitant]
     Route: 048

REACTIONS (1)
  - HAEMORRHAGE [None]
